FAERS Safety Report 5648194-4 (Version None)
Quarter: 2008Q1

REPORT INFORMATION
  Report Type: 
  Country: None (occurrence: None)
  Receive Date: 20080229
  Receipt Date: 20080227
  Transmission Date: 20080703
  Serious: No
  Sender: FDA-Public Use
  Company Number: 002#2#2008-00065

PATIENT
  Age: 83 Year
  Sex: Male
  Weight: 99.7913 kg

DRUGS (7)
  1. NEUPRO [Suspect]
     Indication: PARKINSON'S DISEASE
     Dosage: 4MG/24H, 1 IN 1 D, TRANSDERMAL; 2MG/24H, 1 IN 1 D, TRANSDERMAL
     Route: 062
     Dates: start: 20071215, end: 20071226
  2. NEUPRO [Suspect]
     Indication: PARKINSON'S DISEASE
     Dosage: 4MG/24H, 1 IN 1 D, TRANSDERMAL; 2MG/24H, 1 IN 1 D, TRANSDERMAL
     Route: 062
     Dates: start: 20071227
  3. MIRAPEX [Suspect]
     Indication: PARKINSON'S DISEASE
     Dosage: .125MG, 1 IN 1 D, ORAL; .125MG, 1 IN 1 D, ORAL; .25 MG, 1 IN 1 D, ORAL
     Route: 048
     Dates: start: 20060101
  4. MIRAPEX [Suspect]
     Indication: PARKINSON'S DISEASE
     Dosage: .125MG, 1 IN 1 D, ORAL; .125MG, 1 IN 1 D, ORAL; .25 MG, 1 IN 1 D, ORAL
     Route: 048
     Dates: start: 20060101
  5. SINEMET [Suspect]
     Indication: PARKINSON'S DISEASE
     Dosage: ORAL
     Route: 048
     Dates: start: 20040601
  6. ARICEPT [Suspect]
     Indication: DEMENTIA ALZHEIMER'S TYPE
     Dosage: 10MG, 1 IN 1 D, ORAL
     Route: 048
     Dates: start: 20070301
  7. CYMBALTA [Concomitant]

REACTIONS (7)
  - CONDITION AGGRAVATED [None]
  - CONSTIPATION [None]
  - DIZZINESS [None]
  - DRUG INEFFECTIVE [None]
  - FEELING HOT [None]
  - MUSCULOSKELETAL STIFFNESS [None]
  - PARALYSIS [None]
